FAERS Safety Report 6998324-7 (Version None)
Quarter: 2010Q3

REPORT INFORMATION
  Report Type: 
  Country: None (occurrence: None)
  Receive Date: 20100920
  Receipt Date: 20100907
  Transmission Date: 20110219
  Serious: Yes (Other)
  Sender: FDA-Public Use
  Company Number: DE-JNJFOC-20100900201

PATIENT
  Age: 16 Year
  Sex: Male

DRUGS (4)
  1. REMICADE [Suspect]
     Indication: COLITIS ULCERATIVE
     Route: 042
  2. PREDNISOLONE [Concomitant]
     Indication: COLITIS ULCERATIVE
  3. AZATHIOPRIN [Concomitant]
     Indication: COLITIS ULCERATIVE
  4. MESALAZIN [Concomitant]
     Indication: COLITIS ULCERATIVE

REACTIONS (1)
  - NEOPLASM [None]
